FAERS Safety Report 9148862 (Version 1)
Quarter: 2013Q1

REPORT INFORMATION
  Report Type: Spontaneous
  Country: US (occurrence: None)
  Receive Date: 20130227
  Receipt Date: 20130227
  Transmission Date: 20140127
  Serious: Yes (Other)
  Sender: FDA-Public Use
  Company Number: None

PATIENT
  Age: 53 Year
  Sex: Female
  Weight: 68.04 kg

DRUGS (1)
  1. CYMBALTA 60MG ELI LILLY [Suspect]
     Indication: DEPRESSION
     Dosage: 60MG ONCE A DAY OTIC
     Dates: start: 20080101, end: 20130218

REACTIONS (15)
  - Hepatic enzyme increased [None]
  - Tachycardia [None]
  - Blood pressure increased [None]
  - Hyperhidrosis [None]
  - Night sweats [None]
  - Feeling cold [None]
  - Dizziness [None]
  - Flushing [None]
  - Irritability [None]
  - Pain of skin [None]
  - Memory impairment [None]
  - Asthenia [None]
  - Impaired work ability [None]
  - Fatigue [None]
  - Performance status decreased [None]
